FAERS Safety Report 4349142-X (Version None)
Quarter: 2004Q2

REPORT INFORMATION
  Report Type: 
  Country: None (occurrence: None)
  Receive Date: 20040423
  Receipt Date: 20040409
  Transmission Date: 20050107
  Serious: Yes (Life-Threatening, Hospitalization)
  Sender: FDA-Public Use
  Company Number: 04P-056-0256922-00

PATIENT
  Age: 3 Year
  Sex: Male

DRUGS (3)
  1. DEPAKENE [Suspect]
     Indication: EPILEPSY
     Dosage: 200 MG, 2 IN 1 D, ORAL
     Route: 048
     Dates: start: 20030524, end: 20040312
  2. LAMOTRIGINE [Suspect]
     Indication: EPILEPSY
     Dosage: 5 MG, 2 IN 1 D, ORAL
     Route: 048
     Dates: start: 20040227, end: 20040310
  3. CLOBAZAM [Concomitant]

REACTIONS (19)
  - ALANINE AMINOTRANSFERASE INCREASED [None]
  - ASPARTATE AMINOTRANSFERASE INCREASED [None]
  - BLOOD LACTATE DEHYDROGENASE INCREASED [None]
  - CHEILITIS [None]
  - CONJUNCTIVITIS [None]
  - CONVULSION [None]
  - DRUG HYPERSENSITIVITY [None]
  - DRUG INTERACTION [None]
  - EOSINOPHIL COUNT INCREASED [None]
  - GAMMA-GLUTAMYLTRANSFERASE INCREASED [None]
  - HEPATOMEGALY [None]
  - LYMPHADENOPATHY [None]
  - MICROCYTIC ANAEMIA [None]
  - PLATELET COUNT DECREASED [None]
  - PROTHROMBIN LEVEL DECREASED [None]
  - PROTHROMBIN TIME SHORTENED [None]
  - PYREXIA [None]
  - RASH MACULAR [None]
  - SOMNOLENCE [None]
